FAERS Safety Report 26060259 (Version 1)
Quarter: 2025Q4

REPORT INFORMATION
  Report Type: Spontaneous
  Country: DZ (occurrence: DZ)
  Receive Date: 20251118
  Receipt Date: 20251118
  Transmission Date: 20260119
  Serious: Yes (Death, Other)
  Sender: AMGEN
  Company Number: DZ-AMGEN-DZASP2025224172

PATIENT

DRUGS (1)
  1. ROMIPLOSTIM [Suspect]
     Active Substance: ROMIPLOSTIM
     Indication: Immune thrombocytopenia
     Dosage: UNK
     Route: 065

REACTIONS (9)
  - Death [Fatal]
  - Ischaemic stroke [Fatal]
  - Immune thrombocytopenia [Fatal]
  - Toxicity to various agents [Fatal]
  - Hypogammaglobulinaemia [Unknown]
  - Embolism [Unknown]
  - Infection [Unknown]
  - Drug resistance [Unknown]
  - Infusion related reaction [Unknown]
